FAERS Safety Report 6634793-X (Version None)
Quarter: 2010Q1

REPORT INFORMATION
  Report Type: 
  Country: None (occurrence: None)
  Receive Date: 20100315
  Receipt Date: 20100303
  Transmission Date: 20100710
  Serious: Yes (Other)
  Sender: FDA-Public Use
  Company Number: US-PFIZER INC-2010028484

PATIENT
  Age: 17 Year
  Sex: Male
  Weight: 43 kg

DRUGS (3)
  1. VFEND [Suspect]
     Indication: FUNGAL INFECTION
     Dosage: 4 MG/KG, UNK
  2. VFEND [Suspect]
     Dosage: 13 MG/KG, UNK
  3. CHEMOTHERAPY NOS [Concomitant]
     Dosage: UNK

REACTIONS (2)
  - DRUG CLEARANCE INCREASED [None]
  - LIVER DISORDER [None]
